FAERS Safety Report 7870342-6 (Version None)
Quarter: 2011Q4

REPORT INFORMATION
  Report Type: 
  Country: None (occurrence: None)
  Receive Date: 20111029
  Receipt Date: 20111017
  Transmission Date: 20120403
  Serious: Yes (Other)
  Sender: FDA-Public Use
  Company Number: DE-AMGEN-DEUSP2011048146

PATIENT
  Age: 39 Year
  Sex: Female

DRUGS (1)
  1. ENBREL [Suspect]
     Indication: PRODUCT USED FOR UNKNOWN INDICATION
     Dosage: 50 MG, QWK
     Route: 058
     Dates: start: 20110801, end: 20110801

REACTIONS (4)
  - INJECTION SITE REACTION [None]
  - INJECTION SITE SWELLING [None]
  - RHEUMATIC FEVER [None]
  - INJECTION SITE PAIN [None]
